FAERS Safety Report 14039837 (Version 3)
Quarter: 2018Q1

REPORT INFORMATION
  Report Type: Report from Study
  Country: US (occurrence: US)
  Receive Date: 20171004
  Receipt Date: 20180130
  Transmission Date: 20180508
  Serious: Yes (Death, Other)
  Sender: FDA-Public Use
  Company Number: US-GILEAD-2017-0296566

PATIENT
  Sex: Male
  Weight: 87.27 kg

DRUGS (14)
  1. RANOLAZINE. [Suspect]
     Active Substance: RANOLAZINE
     Indication: VENTRICULAR ARRHYTHMIA
     Dosage: 500 MG, BID
     Route: 065
     Dates: end: 20161027
  2. METOPROLOL SUCCINATE. [Concomitant]
     Active Substance: METOPROLOL SUCCINATE
     Dosage: 25 MG, BID
  3. COENZYME Q10 [Concomitant]
     Active Substance: UBIDECARENONE
  4. FUROSEMIDE. [Concomitant]
     Active Substance: FUROSEMIDE
  5. ASPIRIN                            /00002701/ [Concomitant]
     Active Substance: ASPIRIN
  6. ATORVASTATIN [Concomitant]
     Active Substance: ATORVASTATIN
     Dosage: 80 MG, QD
  7. LISINOPRIL. [Concomitant]
     Active Substance: LISINOPRIL
  8. BUSPIRONE [Concomitant]
     Active Substance: BUSPIRONE HYDROCHLORIDE
  9. FLAXSEED OIL                       /01649403/ [Concomitant]
  10. TRAZODONE [Concomitant]
     Active Substance: TRAZODONE HYDROCHLORIDE
  11. VITAMIN D                          /00107901/ [Concomitant]
     Active Substance: ERGOCALCIFEROL
  12. FLONASE                            /00908302/ [Concomitant]
     Active Substance: MOMETASONE FUROATE
  13. DONEPEZIL. [Concomitant]
     Active Substance: DONEPEZIL
  14. FLUNISOLIDE. [Concomitant]
     Active Substance: FLUNISOLIDE

REACTIONS (3)
  - Fatigue [Unknown]
  - Cardiac failure [Unknown]
  - Cardiac death [Fatal]
